FAERS Safety Report 8245850-9 (Version None)
Quarter: 2012Q1

REPORT INFORMATION
  Report Type: 
  Country: None (occurrence: None)
  Receive Date: 20120330
  Receipt Date: 20120316
  Transmission Date: 20120608
  Serious: Yes (Hospitalization)
  Sender: FDA-Public Use
  Company Number: NL-RANBAXY-2010R1-39556

PATIENT
  Age: 64 Year
  Sex: Female

DRUGS (2)
  1. CODEINE [Concomitant]
     Indication: PRODUCT USED FOR UNKNOWN INDICATION
     Dosage: UNK
     Route: 048
  2. ACETAMINOPHEN [Suspect]
     Indication: PRODUCT USED FOR UNKNOWN INDICATION
     Dosage: UNK
     Route: 048

REACTIONS (4)
  - LOSS OF CONSCIOUSNESS [None]
  - HYPOTHERMIA [None]
  - HEPATIC FAILURE [None]
  - INTENTIONAL OVERDOSE [None]
